FAERS Safety Report 7327138-3 (Version None)
Quarter: 2011Q1

REPORT INFORMATION
  Report Type: 
  Country: None (occurrence: None)
  Receive Date: 20110222
  Receipt Date: 20110211
  Transmission Date: 20110831
  Serious: Yes (Death, Hospitalization)
  Sender: FDA-Public Use
  Company Number: 2009AC000225

PATIENT
  Age: 56 Year
  Sex: Female

DRUGS (46)
  1. METRONIDAZOLE [Concomitant]
  2. ACETAMINOPHEN [Concomitant]
  3. GUAIFENESIN [Concomitant]
  4. OXYCODONE HCL AND ACETAMINOPHEN [Concomitant]
  5. LIPITOR [Concomitant]
  6. SPIRIVA [Concomitant]
  7. AVANDIA [Concomitant]
  8. CORDARONE [Concomitant]
  9. AMIODARONE [Concomitant]
  10. PREDNISONE TAB [Concomitant]
  11. DIGOXIN [Suspect]
     Dosage: 0.25 MG, QD, PO
     Route: 048
     Dates: start: 20050201
  12. SEREVENT [Concomitant]
  13. ZITHROMAX [Concomitant]
  14. ALBUTEROL [Concomitant]
  15. BUMEX [Concomitant]
  16. COZAAR [Concomitant]
  17. AMBIEN [Concomitant]
  18. ALDACTONE [Concomitant]
  19. VITAMIN K TAB [Concomitant]
  20. ATROVENT [Concomitant]
  21. DIGOXIN [Suspect]
     Dosage: 0.25 MG, QD
     Dates: start: 20060201
  22. DIGOXIN [Suspect]
     Dosage: 0.250 MG, QD
     Dates: start: 19990301
  23. ASPIRIN [Concomitant]
  24. NEXIUM [Concomitant]
  25. LEVAQUIN [Concomitant]
  26. SINGULAIR [Concomitant]
  27. SOLU-MEDROL [Concomitant]
  28. KETOCONAZOLE [Concomitant]
  29. LORAZEPAM [Concomitant]
  30. METFORMIN [Concomitant]
  31. XOPENEX [Concomitant]
  32. HYDROCHLOROTHIAZIDE [Concomitant]
  33. GLUCOPHAGE [Concomitant]
  34. AZITHROMYCIN [Concomitant]
  35. INSULIN [Concomitant]
  36. CARDIZEM [Concomitant]
  37. INSULIN DIP [Concomitant]
  38. NATRECO [Concomitant]
  39. DOXY HYCLATE [Concomitant]
  40. PROPOXYPHENE HCL AND ACETAMINOPHEN [Concomitant]
  41. DOBUTREX [Concomitant]
  42. COUMADIN [Concomitant]
  43. LEVAQUIN [Concomitant]
  44. NIFEDIPINE [Concomitant]
  45. POTASSIUM CHLORIDE [Concomitant]
  46. TRIAMTERENE [Concomitant]

REACTIONS (87)
  - INJURY [None]
  - NAUSEA [None]
  - PNEUMONIA [None]
  - LUNG INFILTRATION [None]
  - URINARY TRACT INFECTION [None]
  - DIABETES MELLITUS INADEQUATE CONTROL [None]
  - TREATMENT NONCOMPLIANCE [None]
  - HYPERCHOLESTEROLAEMIA [None]
  - TRICUSPID VALVE INCOMPETENCE [None]
  - BLOOD ALKALINE PHOSPHATASE INCREASED [None]
  - PROTEIN TOTAL DECREASED [None]
  - ASPARTATE AMINOTRANSFERASE INCREASED [None]
  - AORTIC STENOSIS [None]
  - DIARRHOEA [None]
  - MITRAL VALVE INCOMPETENCE [None]
  - BRONCHITIS [None]
  - GOUT [None]
  - COAGULOPATHY [None]
  - VENTRICULAR EXTRASYSTOLES [None]
  - HEAD INJURY [None]
  - ALANINE AMINOTRANSFERASE INCREASED [None]
  - HEPATIC VEIN DILATATION [None]
  - OBSTRUCTIVE AIRWAYS DISORDER [None]
  - HYPOXIA [None]
  - PROTEIN URINE PRESENT [None]
  - BLOOD CHLORIDE DECREASED [None]
  - BUNDLE BRANCH BLOCK [None]
  - PAIN IN EXTREMITY [None]
  - ECONOMIC PROBLEM [None]
  - ATRIAL FIBRILLATION [None]
  - ANAEMIA [None]
  - PULMONARY VALVE INCOMPETENCE [None]
  - ELECTROCARDIOGRAM REPOLARISATION ABNORMALITY [None]
  - INTERNATIONAL NORMALISED RATIO DECREASED [None]
  - BLOOD POTASSIUM DECREASED [None]
  - CORONARY ARTERY BYPASS [None]
  - ASTHENIA [None]
  - CONDITION AGGRAVATED [None]
  - ULCER [None]
  - ANXIETY [None]
  - RED BLOOD CELL SEDIMENTATION RATE INCREASED [None]
  - BLOOD CALCIUM DECREASED [None]
  - BILIRUBIN CONJUGATED INCREASED [None]
  - DYSPNOEA [None]
  - COUGH [None]
  - ISCHAEMIC CARDIOMYOPATHY [None]
  - INTERNATIONAL NORMALISED RATIO INCREASED [None]
  - RENAL FAILURE [None]
  - CHRONIC SINUSITIS [None]
  - TRANSIENT ISCHAEMIC ATTACK [None]
  - PALPITATIONS [None]
  - CARDIAC ANEURYSM [None]
  - MUSCLE STRAIN [None]
  - CONDUCTION DISORDER [None]
  - HYPERLIPIDAEMIA [None]
  - PULMONARY OEDEMA [None]
  - BLOOD SODIUM DECREASED [None]
  - BLOOD ALBUMIN DECREASED [None]
  - RIGHT VENTRICULAR FAILURE [None]
  - METABOLIC ALKALOSIS [None]
  - ASTHMA [None]
  - CONFUSIONAL STATE [None]
  - BRONCHOSPASM [None]
  - GASTRITIS [None]
  - CARDIOMEGALY [None]
  - CARDIOACTIVE DRUG LEVEL DECREASED [None]
  - CONGESTIVE CARDIOMYOPATHY [None]
  - ALBUMIN GLOBULIN RATIO DECREASED [None]
  - HYPOGLYCAEMIA [None]
  - CARDIAC FAILURE CONGESTIVE [None]
  - CHRONIC OBSTRUCTIVE PULMONARY DISEASE [None]
  - GENERALISED OEDEMA [None]
  - ANGINA UNSTABLE [None]
  - REFUSAL OF TREATMENT BY PATIENT [None]
  - PERIPHERAL VASCULAR DISORDER [None]
  - VOMITING [None]
  - VENTRICULAR TACHYCARDIA [None]
  - ACUTE MYOCARDIAL INFARCTION [None]
  - GASTRIC ULCER [None]
  - CONTUSION [None]
  - DECREASED APPETITE [None]
  - DIZZINESS [None]
  - LOCALISED INTRAABDOMINAL FLUID COLLECTION [None]
  - HYPERHIDROSIS [None]
  - PULMONARY HYPERTENSION [None]
  - ARTHRALGIA [None]
  - HYPERGLYCAEMIA [None]
